FAERS Safety Report 6521262-0 (Version None)
Quarter: 2009Q4

REPORT INFORMATION
  Report Type: 
  Country: None (occurrence: None)
  Receive Date: 20091230
  Receipt Date: 20091221
  Transmission Date: 20100525
  Serious: Yes (Hospitalization)
  Sender: FDA-Public Use
  Company Number: US-BIOGENIDEC-2008BI004190

PATIENT
  Age: 67 Year
  Sex: Female
  Weight: 61 kg

DRUGS (3)
  1. AVONEX [Suspect]
     Indication: MULTIPLE SCLEROSIS
     Route: 030
     Dates: start: 20021003, end: 20030101
  2. AVONEX [Suspect]
     Route: 030
     Dates: start: 20030101
  3. ATENOLOL [Concomitant]
     Indication: HYPERTENSION

REACTIONS (7)
  - HERPES ZOSTER OPHTHALMIC [None]
  - HYPERGLYCAEMIA [None]
  - IMMUNE SYSTEM DISORDER [None]
  - MULTIPLE SCLEROSIS RELAPSE [None]
  - SUBARACHNOID HAEMORRHAGE [None]
  - VASCULITIS CEREBRAL [None]
  - WEIGHT DECREASED [None]
